FAERS Safety Report 24656960 (Version 2)
Quarter: 2025Q1

REPORT INFORMATION
  Report Type: Spontaneous
  Country: FR (occurrence: FR)
  Receive Date: 20241125
  Receipt Date: 20250116
  Transmission Date: 20250408
  Serious: Yes (Hospitalization, Other)
  Sender: CELLTRION
  Company Number: FR-CELLTRION INC.-2024FR027896

PATIENT

DRUGS (8)
  1. INFLIXIMAB [Suspect]
     Active Substance: INFLIXIMAB
     Indication: Hidradenitis
     Route: 042
     Dates: start: 20241104
  2. INFLIXIMAB [Suspect]
     Active Substance: INFLIXIMAB
     Dosage: 5MG/KG 60KG THEREFORE 300MG EVERY 4 WEEKS
     Route: 042
     Dates: start: 20240703
  3. INFLIXIMAB [Suspect]
     Active Substance: INFLIXIMAB
     Dosage: 5MG/KG 60KG THEREFORE 300MG EVERY 4 WEEKS
     Route: 042
     Dates: start: 20240731
  4. INFLIXIMAB [Suspect]
     Active Substance: INFLIXIMAB
     Dosage: 5MG/KG 60KG THEREFORE 300MG EVERY 4 WEEKS
     Route: 042
     Dates: start: 20240830
  5. INFLIXIMAB [Suspect]
     Active Substance: INFLIXIMAB
     Dosage: 5MG/KG 60KG THEREFORE 300MG EVERY 4 WEEKS
     Route: 042
     Dates: start: 20240925
  6. INFLIXIMAB [Suspect]
     Active Substance: INFLIXIMAB
     Dosage: 5MG/KG 60KG THEREFORE 300MG EVERY 4 WEEKS
     Route: 042
     Dates: start: 20241028
  7. ACETAMINOPHEN [Concomitant]
     Active Substance: ACETAMINOPHEN
     Indication: Premedication
  8. CETIRIZINE [Concomitant]
     Active Substance: CETIRIZINE HYDROCHLORIDE
     Indication: Premedication

REACTIONS (11)
  - Anaphylactoid reaction [Unknown]
  - Erythema [Unknown]
  - Hot flush [Unknown]
  - Inflammation [Unknown]
  - Hypertension [Unknown]
  - Nausea [Unknown]
  - Erythema [Unknown]
  - Intentional product use issue [Unknown]
  - Wrong technique in product usage process [Unknown]
  - Product preparation error [Unknown]
  - Product quality issue [Unknown]

NARRATIVE: CASE EVENT DATE: 20240927
